FAERS Safety Report 5952042-2 (Version None)
Quarter: 2008Q4

REPORT INFORMATION
  Report Type: 
  Country: None (occurrence: None)
  Receive Date: 20081113
  Receipt Date: 20080114
  Transmission Date: 20090506
  Serious: No
  Sender: FDA-Public Use
  Company Number: A0703013A

PATIENT
  Age: 87 Year
  Sex: Male

DRUGS (6)
  1. COREG [Suspect]
     Indication: HYPERTENSION
     Dosage: 6.25MG TWICE PER DAY
     Route: 048
     Dates: start: 20060101
  2. PROSCAR [Concomitant]
  3. PAXIL [Concomitant]
  4. SIMVASTATIN [Concomitant]
  5. NEXIUM [Concomitant]
  6. FLOMAX [Concomitant]

REACTIONS (1)
  - ALOPECIA [None]
